FAERS Safety Report 5199074-2 (Version None)
Quarter: 2006Q4

REPORT INFORMATION
  Report Type: 
  Country: None (occurrence: None)
  Receive Date: 20060919
  Receipt Date: 20050925
  Transmission Date: 20070319
  Serious: Yes (Other)
  Sender: FDA-Public Use
  Company Number: HQWYE749630SEP05

PATIENT
  Age: 72 Year
  Sex: Female
  Weight: 65.83 kg

DRUGS (1)
  1. ADVIL [Suspect]
     Indication: PAIN
     Dosage: 2 CAPSULES, 3-4 TIMES DAILY, ORAL
     Route: 048
     Dates: start: 20050601, end: 20050901

REACTIONS (4)
  - FATIGUE [None]
  - HYPOAESTHESIA [None]
  - OVERDOSE [None]
  - SWELLING FACE [None]
